FAERS Safety Report 6584037-2 (Version None)
Quarter: 2010Q1

REPORT INFORMATION
  Report Type: 
  Country: None (occurrence: None)
  Receive Date: 20100216
  Receipt Date: 20091214
  Transmission Date: 20100710
  Serious: No
  Sender: FDA-Public Use
  Company Number: US-ABBOTT-09P-163-0615253-00

PATIENT

DRUGS (9)
  1. SIMCOR [Suspect]
     Indication: HIGH DENSITY LIPOPROTEIN DECREASED
     Dosage: 1000/40MG, THE PATIENT TAKES TWO 500/20MG A DAY
     Dates: start: 20090601, end: 20091207
  2. SIMCOR [Suspect]
     Dosage: 500/20MG A DAY
     Dates: start: 20091212
  3. GLYBURIDE [Concomitant]
     Indication: DIABETES MELLITUS
  4. ACTOS [Concomitant]
     Indication: DIABETES MELLITUS
  5. JANUVIA [Concomitant]
     Indication: DIABETES MELLITUS
  6. OMEPRAZOLE [Concomitant]
     Indication: GASTROOESOPHAGEAL REFLUX DISEASE
  7. BENACAR [Concomitant]
     Indication: HYPERTENSION
  8. HYDROCHLOROTHIAZIDE [Concomitant]
     Indication: HYPERTENSION
  9. SPRIVIA [Concomitant]
     Indication: CHRONIC OBSTRUCTIVE PULMONARY DISEASE

REACTIONS (3)
  - FLUSHING [None]
  - PRURITUS [None]
  - URTICARIA [None]
